FAERS Safety Report 7517543-4 (Version None)
Quarter: 2011Q2

REPORT INFORMATION
  Report Type: 
  Country: None (occurrence: None)
  Receive Date: 20110601
  Receipt Date: 20110518
  Transmission Date: 20111010
  Serious: Yes (Other)
  Sender: FDA-Public Use
  Company Number: US-ELI_LILLY_AND_COMPANY-US201105006114

PATIENT
  Sex: Female

DRUGS (1)
  1. FORTEO [Suspect]
     Dosage: 20 UG, QD
     Route: 058
     Dates: end: 20110301

REACTIONS (4)
  - ROAD TRAFFIC ACCIDENT [None]
  - COLLAPSE OF LUNG [None]
  - CLAVICLE FRACTURE [None]
  - RIB FRACTURE [None]
